FAERS Safety Report 13059188 (Version 1)
Quarter: 2016Q4

REPORT INFORMATION
  Report Type: Spontaneous
  Country: JP (occurrence: JP)
  Receive Date: 20161223
  Receipt Date: 20161223
  Transmission Date: 20170207
  Serious: Yes (Life-Threatening, Hospitalization, Other)
  Sender: FDA-Public Use
  Company Number: JP-REGENERON PHARMACEUTICALS, INC.-2016-25326

PATIENT

DRUGS (6)
  1. INSULIN [Concomitant]
     Active Substance: INSULIN NOS
     Indication: PRODUCT USED FOR UNKNOWN INDICATION
     Dosage: UNK
  2. EYLEA [Suspect]
     Active Substance: AFLIBERCEPT
     Indication: DIABETIC RETINAL OEDEMA
     Dosage: 0.05 MG, ONCE LEFT EYE
     Route: 031
     Dates: start: 20160209, end: 20160209
  3. CARBAZOCHROME SODIUM SULFONATE [Concomitant]
     Active Substance: CARBAZOCHROME SODIUM SULFONATE
     Indication: PRODUCT USED FOR UNKNOWN INDICATION
     Dosage: DAILY DOSE 90 MG
     Route: 048
  4. EYLEA [Suspect]
     Active Substance: AFLIBERCEPT
     Dosage: 0.05 MG, ONCE RIGHT EYE
     Route: 031
     Dates: start: 20161108, end: 20161108
  5. EYLEA [Suspect]
     Active Substance: AFLIBERCEPT
     Dosage: 0.05 MG, ONCE RIGHT EYE
     Route: 031
     Dates: start: 20160315, end: 20160315
  6. EYLEA [Suspect]
     Active Substance: AFLIBERCEPT
     Dosage: BOTH EYES 0.05 MG, ONCE
     Route: 031
     Dates: start: 20161004, end: 20161004

REACTIONS (2)
  - Cardiac failure acute [Recovering/Resolving]
  - Pulmonary oedema [Recovering/Resolving]

NARRATIVE: CASE EVENT DATE: 20161108
